FAERS Safety Report 10648126 (Version 1)
Quarter: 2014Q4

REPORT INFORMATION
  Report Type: Spontaneous
  Country: US (occurrence: US)
  Receive Date: 20141212
  Receipt Date: 20141212
  Transmission Date: 20150529
  Serious: No
  Sender: FDA-Public Use
  Company Number: US-009507513-1411USA007663

PATIENT
  Sex: Female
  Weight: 77.98 kg

DRUGS (1)
  1. NEXPLANON [Suspect]
     Active Substance: ETONOGESTREL
     Indication: CONTRACEPTION
     Dosage: 1 DF, UNK
     Route: 059
     Dates: start: 20141010, end: 2014

REACTIONS (4)
  - Implant site abscess [Unknown]
  - Implant site erythema [Unknown]
  - Implant site infection [Unknown]
  - Implant site pain [Unknown]

NARRATIVE: CASE EVENT DATE: 2014
